FAERS Safety Report 12098512 (Version 1)
Quarter: 2016Q1

REPORT INFORMATION
  Report Type: Spontaneous
  Country: US (occurrence: US)
  Receive Date: 20160222
  Receipt Date: 20160222
  Transmission Date: 20160526
  Serious: Yes (Hospitalization)
  Sender: FDA-Public Use
  Company Number: US-BEH-2016058776

PATIENT
  Sex: Female
  Weight: 43 kg

DRUGS (30)
  1. HIZENTRA [Suspect]
     Active Substance: HUMAN IMMUNOGLOBULIN G
  2. BUPROPION. [Concomitant]
     Active Substance: BUPROPION
  3. COENZYME Q-10 [Concomitant]
  4. ASTELIN [Concomitant]
     Active Substance: AZELASTINE HYDROCHLORIDE
  5. HIZENTRA [Suspect]
     Active Substance: HUMAN IMMUNOGLOBULIN G
     Indication: IMMUNODEFICIENCY COMMON VARIABLE
  6. CLONAZEPAM. [Concomitant]
     Active Substance: CLONAZEPAM
  7. SELENIUM [Concomitant]
     Active Substance: SELENIUM
  8. FLONASE [Concomitant]
     Active Substance: FLUTICASONE PROPIONATE
  9. FISH OIL [Concomitant]
     Active Substance: FISH OIL
  10. PRILOSEC [Concomitant]
     Active Substance: OMEPRAZOLE MAGNESIUM
  11. BUFFERIN [Concomitant]
     Active Substance: ASPIRIN
  12. DIPHENHYDRAMINE. [Concomitant]
     Active Substance: DIPHENHYDRAMINE
  13. EPIPEN [Concomitant]
     Active Substance: EPINEPHRINE
  14. ROPINIROLE. [Concomitant]
     Active Substance: ROPINIROLE
  15. PREDNISONE. [Concomitant]
     Active Substance: PREDNISONE
  16. GABAPENTIN. [Concomitant]
     Active Substance: GABAPENTIN
  17. ALPHA LIPOIC ACID [Concomitant]
     Active Substance: .ALPHA.-LIPOIC ACID
  18. CALCIUM D [Concomitant]
     Active Substance: CALCIUM\VITAMIN D
  19. SPIRIVA [Concomitant]
     Active Substance: TIOTROPIUM BROMIDE MONOHYDRATE
  20. PRESERVISION [Concomitant]
     Active Substance: MINERALS\VITAMINS
  21. ZINC [Concomitant]
     Active Substance: ZINC\ZINC CHLORIDE
  22. MEGA MULTIVITAMIN-MINERAL [Concomitant]
  23. FLUTICASONE [Concomitant]
     Active Substance: FLUTICASONE\FLUTICASONE PROPIONATE
  24. XOPENEX [Concomitant]
     Active Substance: LEVALBUTEROL HYDROCHLORIDE
  25. ZYRTEC [Concomitant]
     Active Substance: CETIRIZINE HYDROCHLORIDE
  26. WELLBUTRIN [Concomitant]
     Active Substance: BUPROPION HYDROCHLORIDE
  27. IBUPROFEN. [Concomitant]
     Active Substance: IBUPROFEN
  28. ACETYLCYSTEINE. [Concomitant]
     Active Substance: ACETYLCYSTEINE
  29. OXYGEN. [Concomitant]
     Active Substance: OXYGEN
  30. TUSSIN CF COUGH + COLD [Concomitant]

REACTIONS (2)
  - Chronic obstructive pulmonary disease [Unknown]
  - Asthenia [Unknown]
